FAERS Safety Report 9206176 (Version 3)
Quarter: 2021Q3

REPORT INFORMATION
  Report Type: Spontaneous
  Country: US (occurrence: US)
  Receive Date: 20130403
  Receipt Date: 20210708
  Transmission Date: 20211014
  Serious: Yes (Other)
  Sender: FDA-Public Use
  Company Number: US-PFIZER INC-2013102020

PATIENT
  Age: 41 Year
  Sex: Male
  Weight: 92.97 kg

DRUGS (1)
  1. VIAGRA [Suspect]
     Active Substance: SILDENAFIL CITRATE
     Indication: ERECTILE DYSFUNCTION
     Dosage: 100 MG, AS NEEDED
     Route: 048
     Dates: start: 1993

REACTIONS (3)
  - Accident [Unknown]
  - Back injury [Unknown]
  - Joint injury [Unknown]

NARRATIVE: CASE EVENT DATE: 199502
